FAERS Safety Report 15157832 (Version 1)
Quarter: 2018Q3

REPORT INFORMATION
  Report Type: Spontaneous
  Country: US (occurrence: US)
  Receive Date: 20180718
  Receipt Date: 20180718
  Transmission Date: 20181010
  Serious: No
  Sender: FDA-Public Use
  Company Number: US-PFIZER INC-2018289420

PATIENT
  Age: 61 Year
  Sex: Male

DRUGS (2)
  1. NEURONTIN [Suspect]
     Active Substance: GABAPENTIN
     Dosage: STARTED AT LOW
  2. NEURONTIN [Suspect]
     Active Substance: GABAPENTIN
     Dosage: WORKED UP/WAS TAKING AS MUCH AS I SHOULD

REACTIONS (1)
  - Drug ineffective [Unknown]
